FAERS Safety Report 9179005 (Version 1)
Quarter: 2012Q4

REPORT INFORMATION
  Report Type: 
  Country: US (occurrence: US)
  Receive Date: 20121029
  Receipt Date: 20121029
  Transmission Date: 20130627
  Serious: No
  Sender: FDA-Public Use
  Company Number: US-AMGEN-USASP2012052889

PATIENT
  Sex: Female
  Weight: 102.2 kg

DRUGS (5)
  1. ENBREL [Suspect]
     Indication: PRODUCT USED FOR UNKNOWN INDICATION
     Dosage: 50 mg, qwk
     Route: 058
  2. AMBIEN [Concomitant]
     Dosage: 50 mg, UNK
  3. GABAPENTIN [Concomitant]
     Dosage: 100 mg, UNK
  4. IBUPROFEN [Concomitant]
     Dosage: 200 mg, UNK
  5. ZANAFLEX [Concomitant]
     Dosage: 2 mg, UNK

REACTIONS (2)
  - Pain [Unknown]
  - Injection site bruising [Unknown]
